FAERS Safety Report 12350305 (Version 1)
Quarter: 2016Q2

REPORT INFORMATION
  Report Type: Spontaneous
  Country: US (occurrence: None)
  Receive Date: 20160509
  Receipt Date: 20160509
  Transmission Date: 20160815
  Serious: Yes (Disabling)
  Sender: FDA-Public Use
  Company Number: None

PATIENT
  Age: 33 Year
  Sex: Male
  Weight: 115.67 kg

DRUGS (8)
  1. ROLAIDS ANTACID ULTRA STRENGTH [Suspect]
     Active Substance: CALCIUM CARBONATE\MAGNESIUM HYDROXIDE
     Indication: HYPERCHLORHYDRIA
     Dosage: 87 TABLET(S) 3AS SYMPTOMS OCCUR TAKEN BY MOUTH
     Route: 048
     Dates: start: 20160330, end: 20160502
  2. MULTIVITAMIN [Concomitant]
     Active Substance: VITAMINS
  3. ADDERALL [Concomitant]
     Active Substance: AMPHETAMINE ASPARTATE\AMPHETAMINE SULFATE\DEXTROAMPHETAMINE SACCHARATE\DEXTROAMPHETAMINE SULFATE
  4. VYVANSE [Concomitant]
     Active Substance: LISDEXAMFETAMINE DIMESYLATE
  5. VIIBRYD [Concomitant]
     Active Substance: VILAZODONE HYDROCHLORIDE
  6. MIRTAZAPINE. [Concomitant]
     Active Substance: MIRTAZAPINE
  7. LUNESTA [Concomitant]
     Active Substance: ESZOPICLONE
  8. TESTOSTERONE. [Concomitant]
     Active Substance: TESTOSTERONE

REACTIONS (1)
  - Nephrolithiasis [None]

NARRATIVE: CASE EVENT DATE: 20160503
